FAERS Safety Report 17452395 (Version 1)
Quarter: 2020Q1

REPORT INFORMATION
  Report Type: Spontaneous
  Country: US (occurrence: US)
  Receive Date: 20200224
  Receipt Date: 20200224
  Transmission Date: 20200409
  Serious: Yes (Hospitalization)
  Sender: FDA-Public Use
  Company Number: US-TAKEDA-2020TUS011257

PATIENT
  Sex: Female

DRUGS (14)
  1. ALBUTEROL                          /00139501/ [Concomitant]
     Active Substance: ALBUTEROL
     Dosage: UNK
     Route: 065
  2. DOK [Concomitant]
     Active Substance: DOCUSATE SODIUM
     Dosage: UNK
     Route: 065
  3. HYDRALAZINE [Concomitant]
     Active Substance: HYDRALAZINE HYDROCHLORIDE
     Dosage: UNK
     Route: 065
  4. CARVEDILOL. [Concomitant]
     Active Substance: CARVEDILOL
     Dosage: UNK
     Route: 065
  5. ELIQUIS [Concomitant]
     Active Substance: APIXABAN
     Dosage: UNK
     Route: 065
  6. LOSARTAN. [Concomitant]
     Active Substance: LOSARTAN
     Dosage: UNK
     Route: 065
  7. NIFEDIPINE. [Concomitant]
     Active Substance: NIFEDIPINE
     Dosage: UNK
     Route: 065
  8. OXYCODONE [Concomitant]
     Active Substance: OXYCODONE
     Dosage: UNK
     Route: 065
  9. POLYETHYLENE GLYCOL [Concomitant]
     Active Substance: POLYETHYLENE GLYCOLS
     Dosage: UNK
     Route: 065
  10. PRAVASTATIN. [Concomitant]
     Active Substance: PRAVASTATIN
     Dosage: UNK
     Route: 065
  11. DEXAMETHASONE. [Concomitant]
     Active Substance: DEXAMETHASONE
     Dosage: UNK
     Route: 065
  12. NINLARO [Suspect]
     Active Substance: IXAZOMIB CITRATE
     Indication: PLASMA CELL MYELOMA
     Dosage: 2.3 MILLIGRAM
     Route: 048
     Dates: start: 20191203
  13. TORSEMIDE. [Concomitant]
     Active Substance: TORSEMIDE
     Dosage: UNK
     Route: 065
  14. POMALYST [Concomitant]
     Active Substance: POMALIDOMIDE
     Dosage: UNK
     Route: 065

REACTIONS (2)
  - Off label use [Unknown]
  - Hospitalisation [Unknown]
